FAERS Safety Report 9677981 (Version 1)
Quarter: 2013Q4

REPORT INFORMATION
  Report Type: Spontaneous
  Country: US (occurrence: US)
  Receive Date: 20131108
  Receipt Date: 20131108
  Transmission Date: 20140711
  Serious: Yes (Hospitalization)
  Sender: FDA-Public Use
  Company Number: US-BAYER-2013-135101

PATIENT
  Age: 33 Year
  Sex: Female
  Weight: 101.59 kg

DRUGS (16)
  1. YAZ [Suspect]
  2. YASMIN [Suspect]
  3. PERCOCET [Concomitant]
     Dosage: 5/325 MG
     Route: 048
  4. ALPRAZOLAM [Concomitant]
     Dosage: 0.5 MG, UNK
     Route: 048
     Dates: start: 20070809
  5. NAPROXEN [Concomitant]
     Dosage: 500 MG, UNK
     Dates: start: 20070809
  6. CELEBREX [Concomitant]
     Dosage: 200 MG, UNK
     Route: 048
     Dates: start: 20070831
  7. RELPAX [Concomitant]
     Dosage: 40 MG, UNK
     Route: 048
     Dates: start: 20070831
  8. AMITRIPTYLINE [Concomitant]
     Dosage: 75 MG, UNK
     Route: 048
     Dates: start: 20070831
  9. HYDROCODONE W/APAP [Concomitant]
     Dosage: 5-500 MG
     Route: 048
     Dates: start: 20070912
  10. TRAMADOL [Concomitant]
     Dosage: 50 MG, UNK
     Route: 048
     Dates: start: 20070912
  11. ADVIL [Concomitant]
     Route: 048
  12. LYRICA [Concomitant]
     Dosage: 25 MG, UNK
     Dates: start: 20071019
  13. CYCLOBENZAPRINE [Concomitant]
     Dosage: 10 MG, UNK
     Route: 048
     Dates: start: 20071116
  14. WELLBUTRIN [Concomitant]
  15. XANAX [Concomitant]
  16. ELAVIL [Concomitant]

REACTIONS (1)
  - Deep vein thrombosis [None]
